FAERS Safety Report 14248569 (Version 1)
Quarter: 2017Q4

REPORT INFORMATION
  Report Type: Spontaneous
  Country: US (occurrence: US)
  Receive Date: 20171204
  Receipt Date: 20171204
  Transmission Date: 20180321
  Serious: Yes (Other)
  Sender: FDA-Public Use
  Company Number: US-GILEAD-2017-0307777

PATIENT
  Age: 86 Year
  Sex: Female
  Weight: 58.96 kg

DRUGS (8)
  1. RANEXA [Suspect]
     Active Substance: RANOLAZINE
     Indication: PRODUCT USED FOR UNKNOWN INDICATION
     Dosage: 500 MG, BID
     Route: 065
     Dates: start: 2017
  2. RANEXA [Suspect]
     Active Substance: RANOLAZINE
     Dosage: 500 MG, QD
     Route: 065
     Dates: end: 20171030
  3. LOSARTAN. [Concomitant]
     Active Substance: LOSARTAN
     Dosage: UNK
     Dates: start: 20161207
  4. LEXAPRO [Concomitant]
     Active Substance: ESCITALOPRAM OXALATE
     Indication: DEPRESSION
     Dosage: UNK
  5. PROBIOTIC                          /06395501/ [Concomitant]
     Active Substance: BIFIDOBACTERIUM ANIMALIS LACTIS
     Indication: WEIGHT DECREASED
     Dosage: UNK
     Dates: start: 201711
  6. CARVEDILOL. [Concomitant]
     Active Substance: CARVEDILOL
     Dosage: UNK
  7. DOFETILIDE. [Suspect]
     Active Substance: DOFETILIDE
     Indication: ATRIAL FIBRILLATION
     Dosage: 125 UG, BID
     Route: 048
     Dates: start: 2017
  8. SYNTHROID [Concomitant]
     Active Substance: LEVOTHYROXINE SODIUM
     Indication: THYROID DISORDER
     Dosage: UNK

REACTIONS (8)
  - Fall [Unknown]
  - Thinking abnormal [Recovering/Resolving]
  - Weight decreased [Unknown]
  - Dizziness [Recovered/Resolved]
  - Wrong schedule [Recovered/Resolved]
  - Memory impairment [Recovering/Resolving]
  - Syncope [Unknown]
  - Off label use [Recovered/Resolved]

NARRATIVE: CASE EVENT DATE: 2017
